FAERS Safety Report 7387733-2 (Version None)
Quarter: 2011Q1

REPORT INFORMATION
  Report Type: 
  Country: None (occurrence: None)
  Receive Date: 20110331
  Receipt Date: 20110303
  Transmission Date: 20110831
  Serious: Yes (Hospitalization, Other)
  Sender: FDA-Public Use
  Company Number: US-BAYER-201037776NA

PATIENT
  Sex: Female

DRUGS (9)
  1. PROTOZOL [Concomitant]
     Dosage: UNK
     Route: 061
     Dates: start: 20080101, end: 20090101
  2. YASMIN [Suspect]
     Indication: PREMENSTRUAL SYNDROME
     Dosage: UNK UNK, UNK
     Route: 048
     Dates: start: 20080101, end: 20090101
  3. CIPROFLOXACIN [Concomitant]
     Dosage: 500 MG, UNK
     Route: 048
     Dates: start: 20080101, end: 20090101
  4. RELPAX [Concomitant]
     Dosage: 40 MG, UNK
     Route: 048
     Dates: start: 20080101, end: 20090101
  5. CYCLOBENZAPRINE [Concomitant]
     Dosage: 10 MG, UNK
     Route: 048
     Dates: start: 20080101, end: 20090101
  6. FLUCONAZOLE [Concomitant]
     Dosage: UNK
     Route: 048
     Dates: start: 20080101, end: 20090101
  7. PROPRANOLOL [Concomitant]
     Dosage: 80 MG, UNK
     Route: 048
     Dates: start: 20080101, end: 20090101
  8. YAZ [Suspect]
     Indication: PREMENSTRUAL SYNDROME
     Dosage: UNK UNK, UNK
     Route: 048
     Dates: start: 20080101, end: 20090101
  9. ANUCORT-HC [Concomitant]
     Dosage: UNK
     Route: 054
     Dates: start: 20080101, end: 20090101

REACTIONS (3)
  - CHOLELITHIASIS [None]
  - GALLBLADDER DISORDER [None]
  - CHOLECYSTITIS [None]
